FAERS Safety Report 12695491 (Version 2)
Quarter: 2016Q3

REPORT INFORMATION
  Report Type: Spontaneous
  Country: US (occurrence: US)
  Receive Date: 20160829
  Receipt Date: 20160906
  Transmission Date: 20161109
  Serious: Yes (Hospitalization, Other)
  Sender: FDA-Public Use
  Company Number: US-UCBSA-2016032424

PATIENT
  Age: 67 Year
  Sex: Female
  Weight: 73 kg

DRUGS (6)
  1. ATENOLOL. [Concomitant]
     Active Substance: ATENOLOL
     Indication: BLOOD PRESSURE MEASUREMENT
     Dosage: 25 MG DAILY
     Route: 048
  2. CIMZIA [Suspect]
     Active Substance: CERTOLIZUMAB PEGOL
     Dosage: 400 MG, MONTHLY (QM)
     Route: 058
     Dates: start: 201608
  3. LOSARTAN. [Concomitant]
     Active Substance: LOSARTAN
     Indication: PRODUCT USED FOR UNKNOWN INDICATION
     Dosage: 100 MG DAILY
     Route: 048
  4. CIMZIA [Suspect]
     Active Substance: CERTOLIZUMAB PEGOL
     Indication: RHEUMATOID ARTHRITIS
     Dosage: 400 MG, MONTHLY (QM)
     Route: 058
     Dates: end: 2016
  5. HYDROCODONE BITARTRATE AND ACETAMINOPHEN [Concomitant]
     Active Substance: ACETAMINOPHEN\HYDROCODONE BITARTRATE
     Indication: RHEUMATOID ARTHRITIS
     Dosage: UNK, AS NEEDED (PRN)
     Dates: start: 2009
  6. FUROSEMIDE. [Concomitant]
     Active Substance: FUROSEMIDE
     Indication: PRODUCT USED FOR UNKNOWN INDICATION
     Dosage: 40 MG ONE EVERY 3 DAYS
     Route: 048

REACTIONS (13)
  - Amnesia [Not Recovered/Not Resolved]
  - Infection [Not Recovered/Not Resolved]
  - Speech disorder [Not Recovered/Not Resolved]
  - Contusion [Unknown]
  - Fall [Unknown]
  - White blood cell count increased [Not Recovered/Not Resolved]
  - Back pain [Not Recovered/Not Resolved]
  - Lumbar vertebral fracture [Not Recovered/Not Resolved]
  - Urinary tract infection [Not Recovered/Not Resolved]
  - Joint dislocation [Unknown]
  - Liver function test abnormal [Not Recovered/Not Resolved]
  - Iron deficiency [Not Recovered/Not Resolved]
  - Renal failure [Not Recovered/Not Resolved]

NARRATIVE: CASE EVENT DATE: 2016
